FAERS Safety Report 9704050 (Version 2)
Quarter: 2013Q4

REPORT INFORMATION
  Report Type: Spontaneous
  Country: JP (occurrence: JP)
  Receive Date: 20131122
  Receipt Date: 20131226
  Transmission Date: 20140711
  Serious: Yes (Other)
  Sender: FDA-Public Use
  Company Number: JP-PFIZER INC-2013331941

PATIENT
  Age: 6 Decade
  Sex: Male

DRUGS (2)
  1. CELECOX [Suspect]
     Indication: BACK PAIN
     Dosage: TABLET 100 MG, 200 MG DAILY
     Route: 048
  2. MUCOSTA [Concomitant]
     Dosage: UNK

REACTIONS (1)
  - Rhabdomyolysis [Recovered/Resolved]
